FAERS Safety Report 18359900 (Version 1)
Quarter: 2020Q4

REPORT INFORMATION
  Report Type: Spontaneous
  Country: GB (occurrence: GB)
  Receive Date: 20201008
  Receipt Date: 20201008
  Transmission Date: 20210114
  Serious: Yes (Hospitalization)
  Sender: FDA-Public Use
  Company Number: GB-MYLANLABS-2020M1084312

PATIENT
  Age: 53 Year
  Sex: Female

DRUGS (14)
  1. PANCURONIUM [Concomitant]
     Active Substance: PANCURONIUM
     Indication: SEDATION
  2. SALBUTAMOL [Suspect]
     Active Substance: ALBUTEROL
     Indication: ASTHMA
     Dosage: 5 MG, 4X/DAY (NEBULISED)
     Route: 055
  3. AMINOPHYLLINE. [Suspect]
     Active Substance: AMINOPHYLLINE
     Indication: ASTHMA
     Dosage: 750 MG, DAILY (INFUSION)
  4. HYDROCORTISONE SODIUM SUCCINATE [Suspect]
     Active Substance: HYDROCORTISONE SODIUM SUCCINATE
     Dosage: 200 MG, (STAT)
     Route: 042
  5. HYDROCORTISONE SODIUM SUCCINATE [Suspect]
     Active Substance: HYDROCORTISONE SODIUM SUCCINATE
     Indication: ASTHMA
     Dosage: 150 MG, 4X/DAY
     Route: 042
  6. SUCCINYLCHOLINE                    /00057701/ [Concomitant]
     Active Substance: SUCCINYLCHOLINE
     Indication: ASTHMA
     Dosage: UNK
  7. MIDAZOLAM. [Concomitant]
     Active Substance: MIDAZOLAM
     Indication: ENDOTRACHEAL INTUBATION
     Dosage: 5 MG, EVERY 4 HRS (4 HOURLY BOLUSES)
  8. MIDAZOLAM. [Concomitant]
     Active Substance: MIDAZOLAM
     Indication: SEDATION
  9. SUCCINYLCHOLINE                    /00057701/ [Concomitant]
     Active Substance: SUCCINYLCHOLINE
     Indication: ENDOTRACHEAL INTUBATION
  10. MIDAZOLAM. [Concomitant]
     Active Substance: MIDAZOLAM
     Indication: ASTHMA
  11. PANCURONIUM [Concomitant]
     Active Substance: PANCURONIUM
     Indication: ASTHMA
     Dosage: UNK
  12. PROPOFOL. [Concomitant]
     Active Substance: PROPOFOL
     Indication: ASTHMA
  13. THEOPHYLLINE [Suspect]
     Active Substance: THEOPHYLLINE ANHYDROUS
     Indication: ASTHMA
     Dosage: UNK
     Route: 048
  14. PROPOFOL. [Concomitant]
     Active Substance: PROPOFOL
     Indication: SEDATION
     Dosage: 2 MG/KG (2 MG/KG/HR (INFUSION))

REACTIONS (1)
  - Drug ineffective [Recovered/Resolved]
